FAERS Safety Report 9412005 (Version 1)
Quarter: 2013Q3

REPORT INFORMATION
  Report Type: Spontaneous
  Country: US (occurrence: US)
  Receive Date: 20130722
  Receipt Date: 20130722
  Transmission Date: 20140515
  Serious: No
  Sender: FDA-Public Use
  Company Number: US-BAYER-2013-088015

PATIENT
  Age: 50 Year
  Sex: Female

DRUGS (1)
  1. ALEVE GELCAPS [Suspect]
     Dosage: UNK DF,UNK
     Route: 048

REACTIONS (2)
  - Paraesthesia oral [Recovered/Resolved]
  - Intentional drug misuse [None]
